FAERS Safety Report 15154912 (Version 4)
Quarter: 2018Q4

REPORT INFORMATION
  Report Type: Spontaneous
  Country: US (occurrence: US)
  Receive Date: 20180717
  Receipt Date: 20181001
  Transmission Date: 20190204
  Serious: Yes (Other)
  Sender: FDA-Public Use
  Company Number: US-009507513-1807USA005511

PATIENT
  Age: 53 Year
  Sex: Female

DRUGS (1)
  1. ASMANEX HFA [Suspect]
     Active Substance: MOMETASONE FUROATE
     Indication: ASTHMA
     Dosage: 2 PUFFS TWICE DAILY
     Route: 055
     Dates: start: 2017, end: 20180709

REACTIONS (5)
  - Neuropathy peripheral [Not Recovered/Not Resolved]
  - Treatment noncompliance [Unknown]
  - Gastrooesophageal reflux disease [Not Recovered/Not Resolved]
  - Product dose omission [Unknown]
  - Impaired gastric emptying [Not Recovered/Not Resolved]

NARRATIVE: CASE EVENT DATE: 2017
